FAERS Safety Report 21873678 (Version 1)
Quarter: 2023Q1

REPORT INFORMATION
  Report Type: Spontaneous
  Country: US (occurrence: None)
  Receive Date: 20230116
  Receipt Date: 20230116
  Transmission Date: 20230418
  Serious: Yes (Disabling)
  Sender: FDA-Public Use
  Company Number: None

PATIENT
  Age: 24 Year
  Sex: Male
  Weight: 67.05 kg

DRUGS (3)
  1. TRUVADA [Suspect]
     Active Substance: EMTRICITABINE\TENOFOVIR DISOPROXIL FUMARATE
     Indication: Prophylaxis against HIV infection
     Dosage: FREQUENCY : DAILY;?
     Route: 048
     Dates: start: 20201108, end: 20210120
  2. Truvada generic [Concomitant]
     Dates: start: 20201108, end: 20201215
  3. Truvada generic [Concomitant]
     Dates: start: 20210101, end: 20210120

REACTIONS (3)
  - Product substitution issue [None]
  - Rash [None]
  - Hyperhidrosis [None]

NARRATIVE: CASE EVENT DATE: 20210120
